FAERS Safety Report 5173643-8 (Version None)
Quarter: 2006Q4

REPORT INFORMATION
  Report Type: 
  Country: None (occurrence: None)
  Receive Date: 20061214
  Receipt Date: 20061207
  Transmission Date: 20070319
  Serious: Yes (Hospitalization)
  Sender: FDA-Public Use
  Company Number: US-BRISTOL-MYERS SQUIBB COMPANY-13605456

PATIENT
  Age: 51 Year
  Sex: Male
  Weight: 103 kg

DRUGS (7)
  1. CETUXIMAB [Suspect]
     Indication: SQUAMOUS CELL CARCINOMA
     Dates: start: 20061106, end: 20061106
  2. CISPLATIN [Suspect]
     Indication: SQUAMOUS CELL CARCINOMA
     Dates: start: 20061113, end: 20061113
  3. RADIATION THERAPY [Concomitant]
     Indication: SQUAMOUS CELL CARCINOMA
     Dates: start: 20061201, end: 20061201
  4. KYTRIL [Concomitant]
  5. DECADRON [Concomitant]
  6. COMPAZINE [Concomitant]
  7. REGLAN [Concomitant]

REACTIONS (4)
  - ABDOMINAL PAIN [None]
  - DEHYDRATION [None]
  - NAUSEA [None]
  - VOMITING [None]
